FAERS Safety Report 10360091 (Version 5)
Quarter: 2016Q2

REPORT INFORMATION
  Report Type: Report from Study
  Country: US (occurrence: US)
  Receive Date: 20140804
  Receipt Date: 20160524
  Transmission Date: 20160815
  Serious: Yes (Hospitalization, Other)
  Sender: FDA-Public Use
  Company Number: US-ALEXION PHARMACEUTICALS INC.-A201402935

PATIENT
  Age: 11 Year
  Sex: Male
  Weight: 35 kg

DRUGS (3)
  1. SOLIRIS [Suspect]
     Active Substance: ECULIZUMAB
     Indication: HAEMOLYTIC URAEMIC SYNDROME
     Dosage: 900 MG, Q2W
     Route: 042
     Dates: start: 20111020
  2. SOLIRIS [Suspect]
     Active Substance: ECULIZUMAB
     Dosage: UNK
     Route: 042
  3. LASIX [Suspect]
     Active Substance: FUROSEMIDE
     Indication: PRODUCT USED FOR UNKNOWN INDICATION
     Route: 065

REACTIONS (20)
  - Renal failure [Not Recovered/Not Resolved]
  - Hypocalcaemia [Unknown]
  - Oliguria [Unknown]
  - End stage renal disease [Unknown]
  - Hypertension [Not Recovered/Not Resolved]
  - Pleural effusion [Unknown]
  - Hernia [Unknown]
  - Renal disorder [Unknown]
  - Hypertension [Unknown]
  - Infection [Unknown]
  - Fluid retention [Unknown]
  - Blood alkaline phosphatase increased [Unknown]
  - Swelling [Unknown]
  - Hospitalisation [Unknown]
  - Glomerulonephritis membranoproliferative [Unknown]
  - Blood creatinine increased [Unknown]
  - Hospitalisation [Unknown]
  - Seizure [Unknown]
  - Blood urea increased [Unknown]
  - Fluid intake reduced [Unknown]

NARRATIVE: CASE EVENT DATE: 2014
